FAERS Safety Report 21974200 (Version 1)
Quarter: 2023Q1

REPORT INFORMATION
  Report Type: Spontaneous
  Country: RU (occurrence: None)
  Receive Date: 20230209
  Receipt Date: 20230209
  Transmission Date: 20230417
  Serious: Yes (Life-Threatening)
  Sender: FDA-Public Use
  Company Number: 2023A033884

PATIENT
  Sex: Female

DRUGS (1)
  1. SEROQUEL [Suspect]
     Active Substance: QUETIAPINE FUMARATE
     Route: 048

REACTIONS (9)
  - Tachycardia [Unknown]
  - Product taste abnormal [Unknown]
  - Panic attack [Unknown]
  - Initial insomnia [Unknown]
  - Middle insomnia [Unknown]
  - Sleep deficit [Unknown]
  - Feeling abnormal [Unknown]
  - Somnolence [Unknown]
  - Nightmare [Unknown]
